FAERS Safety Report 18049058 (Version 3)
Quarter: 2021Q4

REPORT INFORMATION
  Report Type: Spontaneous
  Country: IN (occurrence: IN)
  Receive Date: 20200721
  Receipt Date: 20211228
  Transmission Date: 20220303
  Serious: Yes (Death, Hospitalization, Other)
  Sender: FDA-Public Use
  Company Number: IN-PFIZER INC-2020277389

PATIENT
  Age: 64 Year
  Sex: Female

DRUGS (2)
  1. INLYTA [Suspect]
     Active Substance: AXITINIB
     Indication: Metastatic renal cell carcinoma
     Dosage: 5 MG, 2X/DAY
     Route: 048
     Dates: start: 20200604
  2. INLYTA [Suspect]
     Active Substance: AXITINIB
     Dosage: 3 MG, 2X/DAY (X 28 DAYS)
     Dates: end: 2021

REACTIONS (4)
  - Death [Fatal]
  - Mouth ulceration [Unknown]
  - Headache [Unknown]
  - Gastric ulcer [Unknown]
